FAERS Safety Report 5494345-4 (Version None)
Quarter: 2007Q4

REPORT INFORMATION
  Report Type: 
  Country: None (occurrence: None)
  Receive Date: 20071015
  Receipt Date: 20070213
  Transmission Date: 20080405
  Serious: Yes (Other)
  Sender: FDA-Public Use
  Company Number: S06-USA-01889-01

PATIENT
  Age: 52 Year
  Sex: Male

DRUGS (2)
  1. LEXAPRO [Suspect]
     Indication: ANXIETY
     Dosage: 10 MG QD PO
     Route: 048
     Dates: start: 20060505, end: 20060507
  2. KLONOPIN [Concomitant]

REACTIONS (7)
  - ANXIETY [None]
  - DISTURBANCE IN ATTENTION [None]
  - DIZZINESS [None]
  - FLATULENCE [None]
  - MIDDLE INSOMNIA [None]
  - SUICIDAL IDEATION [None]
  - VISION BLURRED [None]
